FAERS Safety Report 18465874 (Version 1)
Quarter: 2020Q4

REPORT INFORMATION
  Report Type: Report from Study
  Country: None (occurrence: US)
  Receive Date: 20201104
  Receipt Date: 20201104
  Transmission Date: 20210114
  Serious: Yes (Other)
  Sender: FDA-Public Use
  Company Number: US-ABBVIE-20K-163-3589620-00

PATIENT
  Age: 31 Year
  Sex: Female

DRUGS (7)
  1. PRAZOSIN. [Concomitant]
     Active Substance: PRAZOSIN
     Indication: SLEEP TERROR
     Dosage: DAILY
     Route: 048
     Dates: start: 2017
  2. CLONAZEPAM. [Concomitant]
     Active Substance: CLONAZEPAM
     Indication: ANXIETY
     Dosage: DAILY
     Route: 048
     Dates: start: 2017
  3. CYMBALTA [Concomitant]
     Active Substance: DULOXETINE HYDROCHLORIDE
     Indication: AFFECTIVE DISORDER
     Dosage: DAILY
     Route: 048
     Dates: start: 2017
  4. ORILISSA [Suspect]
     Active Substance: ELAGOLIX SODIUM
     Indication: PELVIC PAIN
     Route: 048
     Dates: start: 20200814, end: 202008
  5. ORILISSA [Suspect]
     Active Substance: ELAGOLIX SODIUM
     Route: 048
     Dates: start: 20200827, end: 2020
  6. RISPERIDONE. [Concomitant]
     Active Substance: RISPERIDONE
     Indication: AFFECTIVE DISORDER
     Dosage: DAILY
     Route: 048
     Dates: start: 2017
  7. DOXEPIN [Concomitant]
     Active Substance: DOXEPIN
     Indication: SLEEP DISORDER
     Dosage: DAILY
     Route: 048
     Dates: start: 2017

REACTIONS (10)
  - Hyperhidrosis [Not Recovered/Not Resolved]
  - Pelvic pain [Not Recovered/Not Resolved]
  - Trichomoniasis [Unknown]
  - Pain [Not Recovered/Not Resolved]
  - Night sweats [Unknown]
  - Anxiety [Not Recovered/Not Resolved]
  - Dysmenorrhoea [Recovering/Resolving]
  - Scar [Unknown]
  - Mycoplasma genitalium infection [Unknown]
  - Adhesion [Unknown]

NARRATIVE: CASE EVENT DATE: 2020
